FAERS Safety Report 22203497 (Version 2)
Quarter: 2025Q4

REPORT INFORMATION
  Report Type: Report from Study
  Country: US (occurrence: US)
  Receive Date: 20230412
  Receipt Date: 20251117
  Transmission Date: 20260118
  Serious: Yes (Other)
  Sender: AUROBINDO
  Company Number: US-MYLANLABS-2023M1037564

PATIENT
  Age: 37 Year
  Sex: Female

DRUGS (8)
  1. CROMOLYN [Suspect]
     Active Substance: CROMOLYN
     Indication: Mast cell activation syndrome
     Dosage: UNK
  2. CROMOLYN [Suspect]
     Active Substance: CROMOLYN
     Dosage: UNK
  3. MONTELUKAST [Suspect]
     Active Substance: MONTELUKAST
     Indication: Mast cell activation syndrome
     Dosage: UNK
     Route: 065
  4. KETOTIFEN [Suspect]
     Active Substance: KETOTIFEN
     Indication: Mast cell activation syndrome
     Dosage: UNK
     Route: 065
  5. NALTREXONE [Suspect]
     Active Substance: NALTREXONE
     Indication: Mast cell activation syndrome
     Dosage: UNK
     Route: 065
  6. OMALIZUMAB [Suspect]
     Active Substance: OMALIZUMAB
     Indication: Mast cell activation syndrome
     Dosage: UNK
     Route: 065
  7. ZILEUTON [Suspect]
     Active Substance: ZILEUTON
     Indication: Mast cell activation syndrome
     Dosage: UNK
     Route: 065
  8. HYDROXYUREA [Concomitant]
     Active Substance: HYDROXYUREA
     Indication: Mast cell activation syndrome
     Dosage: UNK
     Route: 065

REACTIONS (1)
  - Drug ineffective [Unknown]
